FAERS Safety Report 9339039 (Version 1)
Quarter: 2013Q2

REPORT INFORMATION
  Report Type: Spontaneous
  Country: US (occurrence: None)
  Receive Date: 20130606
  Receipt Date: 20130606
  Transmission Date: 20140414
  Serious: No
  Sender: FDA-Public Use
  Company Number: None

PATIENT
  Age: 84 Year
  Sex: Female
  Weight: 51.71 kg

DRUGS (2)
  1. LORAZEPAM [Suspect]
     Indication: ANXIETY
     Dates: start: 20130529, end: 20130605
  2. LORAZEPAM [Suspect]
     Indication: DIZZINESS
     Dates: start: 20130529, end: 20130605

REACTIONS (4)
  - Drug effect decreased [None]
  - Dizziness [None]
  - Overdose [None]
  - Product quality issue [None]
